FAERS Safety Report 6371877-8 (Version None)
Quarter: 2009Q3

REPORT INFORMATION
  Report Type: 
  Country: None (occurrence: None)
  Receive Date: 20090923
  Receipt Date: 20090915
  Transmission Date: 20100115
  Serious: Yes (Hospitalization, Other)
  Sender: FDA-Public Use
  Company Number: PHHY2009US39593

PATIENT
  Age: 55 Year
  Sex: Male

DRUGS (5)
  1. CYCLOSPORINE [Suspect]
     Indication: LIVER TRANSPLANT
  2. MYCOPHENOLATE MOFETIL [Suspect]
     Indication: LIVER TRANSPLANT
  3. PREDNISONE TAB [Suspect]
     Indication: LIVER TRANSPLANT
  4. MESALAMINE [Concomitant]
     Indication: DIARRHOEA
     Route: 048
  5. MESALAMINE [Concomitant]
     Route: 054

REACTIONS (14)
  - B-CELL LYMPHOMA [None]
  - CLOSTRIDIAL INFECTION [None]
  - DIARRHOEA [None]
  - EPSTEIN-BARR VIRUS ASSOCIATED LYMPHOPROLIFERATIVE DISORDER [None]
  - HAEMATOCHEZIA [None]
  - ILEOSTOMY [None]
  - LYMPHADENOPATHY [None]
  - MALIGNANT LYMPHOID NEOPLASM [None]
  - MUCOSAL ATROPHY [None]
  - NON-HODGKIN'S LYMPHOMA [None]
  - PROCTOCOLECTOMY [None]
  - PROCTOCOLITIS [None]
  - PSEUDOPOLYP [None]
  - WEIGHT DECREASED [None]
